FAERS Safety Report 23018672 (Version 10)
Quarter: 2024Q1

REPORT INFORMATION
  Report Type: Spontaneous
  Country: JP (occurrence: JP)
  Receive Date: 20231003
  Receipt Date: 20240301
  Transmission Date: 20240410
  Serious: Yes (Death, Life-Threatening, Hospitalization, Other)
  Sender: FDA-Public Use
  Company Number: JP-MSD-M2023-38346

PATIENT
  Age: 77 Year
  Sex: Male
  Weight: 62.3 kg

DRUGS (10)
  1. KEYTRUDA [Suspect]
     Active Substance: PEMBROLIZUMAB
     Indication: Renal cell carcinoma stage IV
     Dosage: 200 MILLIGRAM, Q3W
     Route: 041
     Dates: start: 20230904, end: 20230904
  2. LENVATINIB MESYLATE [Suspect]
     Active Substance: LENVATINIB MESYLATE
     Indication: Renal cell carcinoma stage IV
     Dosage: 20 MILLIGRAM, QD
     Route: 048
     Dates: start: 20230904, end: 20230924
  3. LOXOPROFEN SODIUM DIHYDRATE [Concomitant]
     Active Substance: LOXOPROFEN SODIUM DIHYDRATE
     Dosage: 60 MILLIGRAM, TID
     Route: 065
  4. NIFEDIPINE [Concomitant]
     Active Substance: NIFEDIPINE
     Dosage: 40 MILLIGRAM, QD
     Route: 065
  5. LOSARTAN POTASSIUM [Concomitant]
     Active Substance: LOSARTAN POTASSIUM
     Dosage: 50 MILLIGRAM, QD
     Route: 065
  6. ROSUVASTATIN CALCIUM [Concomitant]
     Active Substance: ROSUVASTATIN CALCIUM
     Dosage: 5 MILLIGRAM, QD
     Route: 065
  7. PREGABALIN [Concomitant]
     Active Substance: PREGABALIN
     Dosage: 75 MILLIGRAM, BID
     Route: 065
  8. EPERISONE HYDROCHLORIDE [Concomitant]
     Active Substance: EPERISONE HYDROCHLORIDE
     Dosage: 50 MILLIGRAM, TID
     Route: 065
  9. REBAMIPIDE [Concomitant]
     Active Substance: REBAMIPIDE
     Dosage: 100 MILLIGRAM, TID
     Route: 065
  10. METHYLCOBALAMIN [Concomitant]
     Active Substance: METHYLCOBALAMIN
     Dosage: 500 MICROGRAM, TID
     Route: 065

REACTIONS (15)
  - Ascites [Recovering/Resolving]
  - Septic shock [Not Recovered/Not Resolved]
  - Bacterial infection [Unknown]
  - Dysphonia [Recovered/Resolved]
  - Dysarthria [Not Recovered/Not Resolved]
  - Small intestinal perforation [Fatal]
  - Pneumonia [Unknown]
  - Hypercapnia [Unknown]
  - Fall [Unknown]
  - Malacoplakia gastrointestinal [Unknown]
  - Hypertension [Recovering/Resolving]
  - Platelet count decreased [Recovered/Resolved]
  - Pleural effusion [Recovering/Resolving]
  - Diarrhoea [Unknown]
  - Thirst [Unknown]

NARRATIVE: CASE EVENT DATE: 20230101
